FAERS Safety Report 5402641-1 (Version None)
Quarter: 2007Q3

REPORT INFORMATION
  Report Type: 
  Country: None (occurrence: None)
  Receive Date: 20070801
  Receipt Date: 20070525
  Transmission Date: 20080115
  Serious: No
  Sender: FDA-Public Use
  Company Number: A0644076A

PATIENT
  Age: 45 Year
  Sex: Female
  Weight: 59.1 kg

DRUGS (6)
  1. IMITREX [Suspect]
     Indication: MIGRAINE
     Dosage: 100MG AS REQUIRED
     Route: 048
  2. HYDROCODONE BITARTRATE [Concomitant]
     Indication: MIGRAINE
     Route: 048
     Dates: start: 20070319
  3. KETOPROFEN [Concomitant]
     Indication: MIGRAINE
     Route: 048
     Dates: start: 20070316
  4. FEXOFENADINE [Concomitant]
     Indication: MULTIPLE ALLERGIES
     Route: 048
  5. NASACORT [Concomitant]
     Indication: MULTIPLE ALLERGIES
     Route: 045
  6. LIPITOR [Concomitant]
     Route: 048

REACTIONS (2)
  - DRUG INEFFECTIVE [None]
  - PHARMACEUTICAL PRODUCT COMPLAINT [None]
